FAERS Safety Report 11076620 (Version 1)
Quarter: 2015Q2

REPORT INFORMATION
  Report Type: Spontaneous
  Country: FR (occurrence: FR)
  Receive Date: 20150429
  Receipt Date: 20150429
  Transmission Date: 20150821
  Serious: Yes (Hospitalization, Other)
  Sender: FDA-Public Use
  Company Number: FR-BAXTER-2015BAX021336

PATIENT
  Age: 35 Year
  Sex: Female

DRUGS (18)
  1. DIFFU-K [Concomitant]
     Active Substance: POTASSIUM CHLORIDE
     Indication: DRUG THERAPY
     Route: 065
  2. OLMESARTAN [Concomitant]
     Active Substance: OLMESARTAN
     Indication: DRUG THERAPY
     Route: 065
  3. BISOPROLOL [Suspect]
     Active Substance: BISOPROLOL
     Indication: DRUG THERAPY
     Route: 065
  4. ZOPHREN [Concomitant]
     Active Substance: ONDANSETRON
     Indication: DRUG THERAPY
     Route: 065
  5. INEXIUM [Concomitant]
     Active Substance: ESOMEPRAZOLE
     Indication: DRUG THERAPY
     Route: 065
  6. CLAIRYG [Suspect]
     Active Substance: HUMAN IMMUNOGLOBULIN G
     Indication: SYSTEMIC SCLEROSIS
     Dosage: 7TH COURSE
     Route: 065
     Dates: start: 20140804
  7. CLAIRYG [Suspect]
     Active Substance: HUMAN IMMUNOGLOBULIN G
     Route: 065
     Dates: start: 20140903, end: 20141005
  8. PROCORALAN [Suspect]
     Active Substance: IVABRADINE
     Indication: DRUG THERAPY
     Route: 065
  9. ALDACTONE [Concomitant]
     Active Substance: SPIRONOLACTONE
     Indication: DRUG THERAPY
     Route: 065
  10. COUMADINE [Concomitant]
     Active Substance: WARFARIN SODIUM
     Indication: DRUG THERAPY
     Route: 065
  11. SOLUPRED [Concomitant]
     Active Substance: PREDNISOLONE
     Indication: DRUG THERAPY
     Route: 065
  12. UVESTEROL [Concomitant]
     Indication: DRUG THERAPY
     Route: 065
  13. LASILIX [Concomitant]
     Active Substance: FUROSEMIDE
     Indication: DRUG THERAPY
     Route: 065
  14. ENDOXAN 1000 MG, POUDRE POUR SOLUTION INJECTABLE [Suspect]
     Active Substance: CYCLOPHOSPHAMIDE
     Indication: PRODUCT USED FOR UNKNOWN INDICATION
     Dosage: PER 24 HRS
     Route: 042
     Dates: start: 20140715, end: 20140806
  15. UROMITEXAN 5 G/50 ML, SOLUTION INJECTABLE POUR PERFUSION EN FLACON [Suspect]
     Active Substance: MESNA
     Indication: PRODUCT USED FOR UNKNOWN INDICATION
     Dosage: PER 24 HRS
     Route: 042
     Dates: start: 20140715, end: 20140806
  16. CLAIRYG [Suspect]
     Active Substance: HUMAN IMMUNOGLOBULIN G
     Indication: PRODUCT USED FOR UNKNOWN INDICATION
     Dosage: 7TH COURSE
     Route: 065
     Dates: start: 20140805
  17. SPECIAFOLDINE [Concomitant]
     Active Substance: FOLIC ACID
     Indication: DRUG THERAPY
     Route: 065
  18. CELLCEPT [Concomitant]
     Active Substance: MYCOPHENOLATE MOFETIL\MYCOPHENOLATE MOFETIL HYDROCHLORIDE
     Indication: PRODUCT USED FOR UNKNOWN INDICATION
     Route: 065
     Dates: start: 20150413

REACTIONS (16)
  - Dermatitis exfoliative [Unknown]
  - Raynaud^s phenomenon [Unknown]
  - Malaise [Unknown]
  - Circulatory collapse [Recovered/Resolved]
  - Angioedema [Recovered/Resolved]
  - Tachycardia [Unknown]
  - Headache [Unknown]
  - Hypotension [Unknown]
  - Flushing [Recovered/Resolved]
  - Renal failure [Recovered/Resolved]
  - Dyspnoea [Unknown]
  - Nausea [Unknown]
  - Infusion related reaction [Recovered/Resolved]
  - Ventricular arrhythmia [Unknown]
  - Vomiting [Unknown]
  - Leukocytosis [Unknown]

NARRATIVE: CASE EVENT DATE: 20140805
